FAERS Safety Report 7684942-X (Version None)
Quarter: 2011Q3

REPORT INFORMATION
  Report Type: 
  Country: None (occurrence: None)
  Receive Date: 20110816
  Receipt Date: 20110811
  Transmission Date: 20111222
  Serious: Yes (Death, Hospitalization, Other)
  Sender: FDA-Public Use
  Company Number: PHHY2011BR72632

PATIENT
  Age: 83 Year
  Sex: Female

DRUGS (1)
  1. EXELON [Suspect]
     Dosage: 4.6 MG
     Route: 062

REACTIONS (4)
  - PNEUMONIA ASPIRATION [None]
  - LIVER DISORDER [None]
  - RENAL DISORDER [None]
  - GASTROINTESTINAL CARCINOMA [None]
